FAERS Safety Report 6680193-6 (Version None)
Quarter: 2010Q2

REPORT INFORMATION
  Report Type: 
  Country: None (occurrence: None)
  Receive Date: 20100413
  Receipt Date: 20100331
  Transmission Date: 20101027
  Serious: Yes (Death)
  Sender: FDA-Public Use
  Company Number: FR-BAXTER-2010BH008501

PATIENT
  Age: 23 Month
  Sex: Male
  Weight: 11 kg

DRUGS (2)
  1. ENDOXAN BAXTER [Suspect]
     Indication: DRUG USE FOR UNKNOWN INDICATION
     Route: 042
     Dates: start: 20100203, end: 20100205
  2. BUSULFEX [Suspect]
     Indication: DRUG USE FOR UNKNOWN INDICATION
     Route: 042
     Dates: start: 20100207, end: 20100211

REACTIONS (1)
  - VENOOCCLUSIVE LIVER DISEASE [None]
